FAERS Safety Report 8913688 (Version 7)
Quarter: 2015Q3

REPORT INFORMATION
  Report Type: Report from Study
  Country: US (occurrence: US)
  Receive Date: 20121116
  Receipt Date: 20150724
  Transmission Date: 20151125
  Serious: Yes (Death, Hospitalization)
  Sender: FDA-Public Use
  Company Number: US-BIOGENIDEC-2012BI052982

PATIENT
  Age: 59 Year
  Sex: Male

DRUGS (21)
  1. GABAPENTIN. [Concomitant]
     Active Substance: GABAPENTIN
  2. VITAMIN E [Concomitant]
     Active Substance: .ALPHA.-TOCOPHEROL
  3. VITAMIN C [Concomitant]
     Active Substance: ASCORBIC ACID
  4. NITROFURANTOIN. [Concomitant]
     Active Substance: NITROFURANTOIN
  5. UROXATRAL [Concomitant]
     Active Substance: ALFUZOSIN HYDROCHLORIDE
  6. VITAMIN D3 [Concomitant]
     Active Substance: CHOLECALCIFEROL
  7. PAROXETINE [Concomitant]
     Active Substance: PAROXETINE\PAROXETINE HYDROCHLORIDE
  8. VITAMIN B12 [Concomitant]
     Active Substance: CYANOCOBALAMIN
  9. VITAMIN B6 [Concomitant]
     Active Substance: PYRIDOXINE HYDROCHLORIDE
  10. TYSABRI [Suspect]
     Active Substance: NATALIZUMAB
     Indication: MULTIPLE SCLEROSIS
     Route: 042
     Dates: start: 20080125, end: 20120913
  11. AVONEX [Concomitant]
     Active Substance: INTERFERON BETA-1A
     Indication: MULTIPLE SCLEROSIS
  12. AMANTADINE [Concomitant]
     Active Substance: AMANTADINE
  13. ATENOLOL. [Concomitant]
     Active Substance: ATENOLOL
  14. FISH OIL [Concomitant]
     Active Substance: FISH OIL
  15. PROTONIX [Concomitant]
     Active Substance: PANTOPRAZOLE SODIUM
  16. COLACE [Concomitant]
     Active Substance: DOCUSATE SODIUM
  17. TESTOSTERONE. [Concomitant]
     Active Substance: TESTOSTERONE
  18. FOLIC ACID. [Concomitant]
     Active Substance: FOLIC ACID
  19. MULTIVITAMIN [Concomitant]
     Active Substance: VITAMINS
  20. MAGNESIUM [Concomitant]
     Active Substance: MAGNESIUM
  21. IRON [Concomitant]
     Active Substance: IRON

REACTIONS (2)
  - Multiple sclerosis relapse [Unknown]
  - Progressive multifocal leukoencephalopathy [Fatal]

NARRATIVE: CASE EVENT DATE: 201210
